FAERS Safety Report 4463224-3 (Version None)
Quarter: 2004Q3

REPORT INFORMATION
  Report Type: 
  Country: None (occurrence: None)
  Receive Date: 20040930
  Receipt Date: 20040923
  Transmission Date: 20050211
  Serious: Yes (Hospitalization, Other)
  Sender: FDA-Public Use
  Company Number: PHNU2004DE03319

PATIENT
  Sex: Male

DRUGS (8)
  1. MYFORTIC [Suspect]
     Indication: RENAL TRANSPLANT
     Route: 048
  2. SANDIMMUNE [Concomitant]
     Indication: RENAL TRANSPLANT
     Dosage: 175 MG DAILY
     Route: 048
  3. NORVASC [Concomitant]
  4. DIOVAN [Concomitant]
  5. CYNT ^BEIERSDORF^ [Concomitant]
  6. NEXIUM [Concomitant]
  7. TORSEMIDE [Concomitant]
  8. IRON [Suspect]
     Route: 042

REACTIONS (6)
  - AMPUTATION [None]
  - DIABETIC GANGRENE [None]
  - DRUG INTERACTION [None]
  - IRON DEFICIENCY [None]
  - POLYCYTHAEMIA [None]
  - SERUM FERRITIN DECREASED [None]
